FAERS Safety Report 13470492 (Version 1)
Quarter: 2017Q2

REPORT INFORMATION
  Report Type: Spontaneous
  Country: US (occurrence: US)
  Receive Date: 20170424
  Receipt Date: 20170424
  Transmission Date: 20170830
  Serious: No
  Sender: FDA-Public Use
  Company Number: US-STRIDES ARCOLAB LIMITED-2017SP000193

PATIENT

DRUGS (3)
  1. METHOTREXATE. [Concomitant]
     Active Substance: METHOTREXATE
     Indication: PYODERMA GANGRENOSUM
     Dosage: 7.5 MG, DAILY
  2. PREDNISONE. [Concomitant]
     Active Substance: PREDNISONE
     Indication: PYODERMA GANGRENOSUM
     Dosage: 60 MG, DAILY
  3. VANCOMYCIN [Suspect]
     Active Substance: VANCOMYCIN
     Indication: CUTANEOUS LEISHMANIASIS
     Dosage: 1 G, BID
     Route: 042

REACTIONS (1)
  - Red man syndrome [Unknown]
